FAERS Safety Report 4385675-8 (Version None)
Quarter: 2004Q2

REPORT INFORMATION
  Report Type: 
  Country: None (occurrence: None)
  Receive Date: 20040628
  Receipt Date: 20040617
  Transmission Date: 20050107
  Serious: Yes (Hospitalization)
  Sender: FDA-Public Use
  Company Number: FR-BRISTOL-MYERS SQUIBB COMPANY-12619060

PATIENT
  Age: 74 Year
  Sex: Male

DRUGS (5)
  1. LOPRIL TABS 25 MG [Suspect]
     Indication: MYOCARDIAL ISCHAEMIA
     Route: 048
     Dates: start: 20040320, end: 20040418
  2. LASILIX [Concomitant]
  3. DIGOXIN [Concomitant]
  4. DILTIAZEM HCL [Concomitant]
  5. ADANCOR [Concomitant]

REACTIONS (3)
  - CUTANEOUS VASCULITIS [None]
  - HENOCH-SCHONLEIN PURPURA [None]
  - THROMBOPHLEBITIS [None]
